FAERS Safety Report 16874150 (Version 1)
Quarter: 2019Q4

REPORT INFORMATION
  Report Type: Report from Study
  Country: US (occurrence: US)
  Receive Date: 20191001
  Receipt Date: 20191001
  Transmission Date: 20200122
  Serious: Yes (Hospitalization)
  Sender: FDA-Public Use
  Company Number: US-BAYER-2019-174960

PATIENT
  Age: 83 Year
  Sex: Male
  Weight: 129.25 kg

DRUGS (5)
  1. OPSUMIT [Concomitant]
     Active Substance: MACITENTAN
     Dosage: UNK
  2. ADEMPAS [Suspect]
     Active Substance: RIOCIGUAT
     Indication: PULMONARY ARTERIAL HYPERTENSION
     Dosage: 2.5 MG, TID
     Route: 048
  3. ADEMPAS [Suspect]
     Active Substance: RIOCIGUAT
     Indication: PULMONARY ARTERIAL HYPERTENSION
     Dosage: UNK
     Route: 048
     Dates: start: 20180913
  4. ALFUZOSIN [Concomitant]
     Active Substance: ALFUZOSIN
     Dosage: UNK
  5. ELIQUIS [Concomitant]
     Active Substance: APIXABAN
     Dosage: UNK

REACTIONS (2)
  - Anaemia [Unknown]
  - Blood count abnormal [Unknown]

NARRATIVE: CASE EVENT DATE: 201907
